FAERS Safety Report 6711343-0 (Version None)
Quarter: 2010Q2

REPORT INFORMATION
  Report Type: 
  Country: None (occurrence: None)
  Receive Date: 20100505
  Receipt Date: 20100426
  Transmission Date: 20101027
  Serious: Yes (Other)
  Sender: FDA-Public Use
  Company Number: CR-PFIZER INC-2010052504

PATIENT
  Sex: Female

DRUGS (1)
  1. ALTRULINE [Suspect]
     Dosage: UNK

REACTIONS (3)
  - INSOMNIA [None]
  - MUSCLE SPASMS [None]
  - SOMNOLENCE [None]
